FAERS Safety Report 7406380-7 (Version None)
Quarter: 2011Q2

REPORT INFORMATION
  Report Type: 
  Country: None (occurrence: None)
  Receive Date: 20110411
  Receipt Date: 20110328
  Transmission Date: 20111010
  Serious: Yes (Other)
  Sender: FDA-Public Use
  Company Number: PHHY2011US25675

PATIENT
  Sex: Female

DRUGS (2)
  1. CLOZARIL [Suspect]
     Dosage: 300 MG, AT NIGHT
  2. CLOZARIL [Suspect]
     Dosage: 250 MG IN THE MORNING

REACTIONS (3)
  - CATATONIA [None]
  - PSYCHIATRIC DECOMPENSATION [None]
  - PSYCHOTIC DISORDER [None]
